FAERS Safety Report 7025628-4 (Version None)
Quarter: 2010Q4

REPORT INFORMATION
  Report Type: 
  Country: None (occurrence: None)
  Receive Date: 20101004
  Receipt Date: 20100927
  Transmission Date: 20110411
  Serious: Yes (Hospitalization)
  Sender: FDA-Public Use
  Company Number: US-SHIRE-SPV1-2010-01629

PATIENT
  Sex: Male
  Weight: 36.281 kg

DRUGS (4)
  1. ADDERALL XR 10 [Suspect]
     Indication: ATTENTION DEFICIT/HYPERACTIVITY DISORDER
     Dosage: 25 MG, 1X/DAY:QD
     Route: 048
     Dates: start: 20070101
  2. ADDERALL XR 10 [Suspect]
     Indication: DYSLEXIA
  3. ALBUTEROL [Concomitant]
     Indication: SEASONAL ALLERGY
     Dosage: UNK, UNK
     Route: 055
  4. ALBUTEROL [Concomitant]
     Indication: ASTHMA

REACTIONS (2)
  - DECREASED APPETITE [None]
  - TYPE 1 DIABETES MELLITUS [None]
